FAERS Safety Report 8896471 (Version 1)
Quarter: 2012Q4

REPORT INFORMATION
  Report Type: Spontaneous
  Country: US (occurrence: None)
  Receive Date: 20121107
  Receipt Date: 20121107
  Transmission Date: 20130627
  Serious: Yes (Life-Threatening)
  Sender: FDA-Public Use
  Company Number: None

PATIENT
  Age: 9 Year
  Sex: Female
  Weight: 26.7 kg

DRUGS (5)
  1. ESCITALOPRAM [Suspect]
     Indication: OPPOSITIONAL DEFIANT DISORDER
     Route: 048
     Dates: start: 20121031, end: 20121104
  2. ESCITALOPRAM [Suspect]
     Indication: MOOD DISORDER NOS
     Route: 048
     Dates: start: 20121031, end: 20121104
  3. AMPHETAMINE SALTS [Concomitant]
  4. FOCALIN [Concomitant]
  5. COLACE [Concomitant]

REACTIONS (1)
  - Suicidal ideation [None]
